FAERS Safety Report 4534193-2 (Version None)
Quarter: 2004Q4

REPORT INFORMATION
  Report Type: 
  Country: None (occurrence: None)
  Receive Date: 20041214
  Receipt Date: 20040903
  Transmission Date: 20050328
  Serious: No
  Sender: FDA-Public Use
  Company Number: 2004233933US

PATIENT
  Age: 37 Year
  Sex: Female
  Weight: 45.4 kg

DRUGS (6)
  1. BEXTRA [Suspect]
     Dosage: 10 MG, QD, ORAL
     Route: 048
     Dates: start: 20040801, end: 20040902
  2. BENADRYL [Suspect]
     Dosage: 25 MG, PRN, ORAL
     Route: 048
  3. LORTAB [Concomitant]
  4. ZOVIA 1/35E-21 [Concomitant]
  5. VIGAMOX [Concomitant]
  6. OPCON-A [Concomitant]

REACTIONS (7)
  - CHEST PAIN [None]
  - DYSPHAGIA [None]
  - EAR DISORDER [None]
  - HYPERSENSITIVITY [None]
  - LYMPHADENOPATHY [None]
  - PRURITUS [None]
  - RASH [None]
